FAERS Safety Report 15154823 (Version 1)
Quarter: 2018Q3

REPORT INFORMATION
  Report Type: Spontaneous
  Country: US (occurrence: US)
  Receive Date: 20180717
  Receipt Date: 20180717
  Transmission Date: 20181010
  Serious: No
  Sender: FDA-Public Use
  Company Number: US-EISAI MEDICAL RESEARCH-EC-2018-042334

PATIENT
  Sex: Male

DRUGS (2)
  1. LENVIMA [Suspect]
     Active Substance: LENVATINIB
     Indication: ADRENAL GLAND CANCER
     Route: 048
     Dates: start: 20180627, end: 2018
  2. LENVIMA [Suspect]
     Active Substance: LENVATINIB
     Route: 048
     Dates: start: 201807

REACTIONS (9)
  - Joint swelling [Not Recovered/Not Resolved]
  - Trismus [Not Recovered/Not Resolved]
  - Off label use [Not Recovered/Not Resolved]
  - Dysphonia [Not Recovered/Not Resolved]
  - Incorrect drug administration duration [Not Recovered/Not Resolved]
  - Dysgeusia [Not Recovered/Not Resolved]
  - Bloody discharge [Not Recovered/Not Resolved]
  - Eye discharge [Not Recovered/Not Resolved]
  - Weight decreased [Not Recovered/Not Resolved]

NARRATIVE: CASE EVENT DATE: 2018
